FAERS Safety Report 16877268 (Version 1)
Quarter: 2019Q4

REPORT INFORMATION
  Report Type: Spontaneous
  Country: US (occurrence: US)
  Receive Date: 20191002
  Receipt Date: 20191002
  Transmission Date: 20200122
  Serious: Yes (Hospitalization)
  Sender: FDA-Public Use
  Company Number: US-HORIZON-ACT-0248-2019

PATIENT
  Age: 30 Year
  Sex: Male

DRUGS (1)
  1. ACTIMMUNE [Suspect]
     Active Substance: INTERFERON GAMMA-1B
     Indication: COCCIDIOIDOMYCOSIS
     Dosage: 100MCGS 3 TIMES WEEKLY
     Dates: start: 20180706

REACTIONS (2)
  - Off label use [Unknown]
  - Isosporiasis [Recovered/Resolved]

NARRATIVE: CASE EVENT DATE: 20190814
